FAERS Safety Report 21350718 (Version 3)
Quarter: 2022Q3

REPORT INFORMATION
  Report Type: Spontaneous
  Country: CA (occurrence: CA)
  Receive Date: 20220919
  Receipt Date: 20220929
  Transmission Date: 20221027
  Serious: Yes (Other)
  Sender: FDA-Public Use
  Company Number: CA-PFIZER INC-202201166716

PATIENT
  Age: 53 Year
  Sex: Female

DRUGS (1)
  1. DEPO-PROVERA [Suspect]
     Active Substance: MEDROXYPROGESTERONE ACETATE
     Indication: Contraception
     Dosage: UNK

REACTIONS (23)
  - Haemorrhage [Recovered/Resolved]
  - Thrombosis [Recovered/Resolved]
  - Spinal osteoarthritis [Not Recovered/Not Resolved]
  - Spinal column injury [Unknown]
  - Spinal deformity [Unknown]
  - Osteoarthritis [Unknown]
  - Pain [Unknown]
  - Intervertebral disc disorder [Unknown]
  - Arthropathy [Unknown]
  - Condition aggravated [Unknown]
  - Dyspnoea [Unknown]
  - Spondylitis [Unknown]
  - Scoliosis [Unknown]
  - Lipoma [Unknown]
  - Vaginal haemorrhage [Recovered/Resolved]
  - Malaise [Unknown]
  - Mental disorder [Unknown]
  - Depression [Unknown]
  - Palpitations [Unknown]
  - Anger [Unknown]
  - Drug hypersensitivity [Unknown]
  - Hyperhidrosis [Unknown]
  - Illness [Unknown]

NARRATIVE: CASE EVENT DATE: 20170101
